FAERS Safety Report 17589146 (Version 1)
Quarter: 2020Q1

REPORT INFORMATION
  Report Type: Spontaneous
  Country: US (occurrence: US)
  Receive Date: 20200325
  Receipt Date: 20200325
  Transmission Date: 20200409
  Serious: No
  Sender: FDA-Public Use
  Company Number: None

PATIENT
  Age: 45 Year
  Sex: Female

DRUGS (1)
  1. BENLYSTA [Suspect]
     Active Substance: BELIMUMAB
     Dosage: ?          OTHER DOSE:1 INJECTION;?
     Route: 058
     Dates: start: 20200325

REACTIONS (2)
  - Acne [None]
  - Purulence [None]

NARRATIVE: CASE EVENT DATE: 20200325
